FAERS Safety Report 4374254-4 (Version None)
Quarter: 2004Q2

REPORT INFORMATION
  Report Type: 
  Country: None (occurrence: None)
  Receive Date: 20040608
  Receipt Date: 20040608
  Transmission Date: 20050107
  Serious: Yes (Hospitalization)
  Sender: FDA-Public Use
  Company Number: None

PATIENT
  Age: 77 Year
  Sex: Female
  Weight: 68.4932 kg

DRUGS (4)
  1. SANDOSTATIN [Suspect]
     Indication: COLON CANCER
     Dosage: 30 MG IM
     Route: 030
     Dates: start: 20040427
  2. SANDOSTATIN [Suspect]
     Dosage: 30 MG IM
     Route: 030
     Dates: start: 20040525
  3. PLACEBO [Suspect]
  4. PLACEBO [Suspect]

REACTIONS (2)
  - DEHYDRATION [None]
  - POST PROCEDURAL DIARRHOEA [None]
